FAERS Safety Report 9319512 (Version 3)
Quarter: 2013Q3

REPORT INFORMATION
  Report Type: Spontaneous
  Country: US (occurrence: US)
  Receive Date: 20130530
  Receipt Date: 20130729
  Transmission Date: 20140515
  Serious: Yes (Hospitalization)
  Sender: FDA-Public Use
  Company Number: US-MERCK-1305USA016156

PATIENT
  Age: 69 Year
  Sex: Male

DRUGS (4)
  1. HEXADROL INJECTION [Suspect]
     Indication: THROMBOCYTOPENIA
  2. HEXADROL INJECTION [Suspect]
     Indication: EPISTAXIS
  3. GLOBULIN, IMMUNE [Concomitant]
     Indication: THROMBOCYTOPENIA
  4. GLOBULIN, IMMUNE [Concomitant]
     Indication: EPISTAXIS

REACTIONS (1)
  - Aspergillus infection [Recovering/Resolving]
